FAERS Safety Report 18926427 (Version 1)
Quarter: 2021Q1

REPORT INFORMATION
  Report Type: Other
  Country: FR (occurrence: FR)
  Receive Date: 20210223
  Receipt Date: 20210223
  Transmission Date: 20210420
  Serious: Yes (Other)
  Sender: FDA-Public Use
  Company Number: FR-ROCHE-2774806

PATIENT
  Age: 34 Year

DRUGS (2)
  1. CRIZOTINIB [Concomitant]
     Active Substance: CRIZOTINIB
  2. ALECTINIB. [Suspect]
     Active Substance: ALECTINIB
     Indication: NEUROENDOCRINE CARCINOMA METASTATIC
     Dosage: FIRST?LINE THERAPY
     Route: 065

REACTIONS (2)
  - Hepatitis [Unknown]
  - Bacterial toxaemia [Unknown]
